FAERS Safety Report 22035840 (Version 1)
Quarter: 2023Q1

REPORT INFORMATION
  Report Type: Spontaneous
  Country: US (occurrence: None)
  Receive Date: 20230222
  Receipt Date: 20230222
  Transmission Date: 20230418
  Serious: Yes (Death)
  Sender: FDA-Public Use
  Company Number: None

PATIENT
  Age: 74 Year
  Sex: Female

DRUGS (1)
  1. BALVERSA [Suspect]
     Active Substance: ERDAFITINIB
     Indication: Neoplasm malignant
     Dosage: 4MG ONCE A DAY BY MOUTH
     Route: 048
     Dates: start: 20220817

REACTIONS (1)
  - Disease complication [None]

NARRATIVE: CASE EVENT DATE: 20230210
